FAERS Safety Report 14702596 (Version 1)
Quarter: 2018Q2

REPORT INFORMATION
  Report Type: Report from Study
  Country: None (occurrence: BR)
  Receive Date: 20180402
  Receipt Date: 20180402
  Transmission Date: 20180711
  Serious: Yes (Hospitalization, Other)
  Sender: FDA-Public Use
  Company Number: BR-ABBVIE-18K-020-2304209-00

PATIENT
  Age: 34 Year
  Sex: Female
  Weight: 58 kg

DRUGS (4)
  1. APLAUSE [Concomitant]
     Active Substance: BLACK COHOSH
     Indication: MENOPAUSE
  2. HUMIRA [Suspect]
     Active Substance: ADALIMUMAB
     Indication: ANKYLOSING SPONDYLITIS
     Route: 058
     Dates: start: 20110111
  3. CALCIUM [Concomitant]
     Active Substance: CALCIUM
     Indication: MINERAL SUPPLEMENTATION
  4. HYDROCHLOROTHIAZIDE. [Concomitant]
     Active Substance: HYDROCHLOROTHIAZIDE
     Indication: BLOOD PRESSURE ABNORMAL

REACTIONS (8)
  - Malaise [Recovered/Resolved]
  - Discomfort [Recovering/Resolving]
  - Fear [Unknown]
  - Liver disorder [Unknown]
  - Feeling hot [Unknown]
  - Headache [Recovered/Resolved]
  - Aneurysm [Recovered/Resolved]
  - Cholelithiasis [Recovered/Resolved]

NARRATIVE: CASE EVENT DATE: 201711
